FAERS Safety Report 5716099-6 (Version None)
Quarter: 2008Q2

REPORT INFORMATION
  Report Type: 
  Country: None (occurrence: None)
  Receive Date: 20080423
  Receipt Date: 20080423
  Transmission Date: 20081010
  Serious: Yes (Other)
  Sender: FDA-Public Use
  Company Number: None

PATIENT
  Sex: Male
  Weight: 77.1115 kg

DRUGS (1)
  1. ZOLPIDEM [Suspect]
     Indication: INSOMNIA
     Dosage: 5MG HS PO
     Route: 048
     Dates: start: 20080409, end: 20080420

REACTIONS (2)
  - ABNORMAL SLEEP-RELATED EVENT [None]
  - IMPAIRED DRIVING ABILITY [None]
